FAERS Safety Report 9490156 (Version 1)
Quarter: 2013Q3

REPORT INFORMATION
  Report Type: Spontaneous
  Country: CN (occurrence: CN)
  Receive Date: 20130830
  Receipt Date: 20130830
  Transmission Date: 20140515
  Serious: Yes (Other)
  Sender: FDA-Public Use
  Company Number: CN-009507513-1308CHN011902

PATIENT
  Age: 31 Year
  Sex: Female

DRUGS (1)
  1. MARVELON (IN ROMAN AND CHINESE) [Suspect]
     Dosage: UNK
     Route: 048
     Dates: end: 2013

REACTIONS (2)
  - Optic neuritis [Unknown]
  - Optic ischaemic neuropathy [Unknown]
